FAERS Safety Report 7545177-4 (Version None)
Quarter: 2011Q2

REPORT INFORMATION
  Report Type: 
  Country: None (occurrence: None)
  Receive Date: 20110525
  Receipt Date: 20110304
  Transmission Date: 20111010
  Serious: No
  Sender: FDA-Public Use
  Company Number: 324492

PATIENT
  Age: 61 Year
  Sex: Female

DRUGS (2)
  1. VICTOZA [Suspect]
     Indication: TYPE 2 DIABETES MELLITUS
     Dosage: SUBCUTANEOUS
     Route: 058
  2. VICTOZA [Suspect]

REACTIONS (4)
  - WEIGHT DECREASED [None]
  - BLOOD GLUCOSE INCREASED [None]
  - DEVICE BREAKAGE [None]
  - DRUG DOSE OMISSION [None]
